FAERS Safety Report 7661427-8 (Version None)
Quarter: 2011Q3

REPORT INFORMATION
  Report Type: 
  Country: None (occurrence: None)
  Receive Date: 20110805
  Receipt Date: 20101011
  Transmission Date: 20111222
  Serious: No
  Sender: FDA-Public Use
  Company Number: US-ABBOTT-10P-163-0677676-00

PATIENT
  Sex: Male
  Weight: 83.99 kg

DRUGS (2)
  1. LISINOPRIL [Concomitant]
     Indication: HYPERTENSION
  2. NIASPAN [Suspect]
     Indication: HIGH DENSITY LIPOPROTEIN DECREASED
     Route: 048
     Dates: start: 20100923, end: 20101002

REACTIONS (4)
  - RASH MACULAR [None]
  - BURNING SENSATION [None]
  - HYPERAESTHESIA [None]
  - PAIN [None]
